FAERS Safety Report 4294840-X (Version None)
Quarter: 2004Q1

REPORT INFORMATION
  Report Type: 
  Country: None (occurrence: None)
  Receive Date: 20040216
  Receipt Date: 20030120
  Transmission Date: 20041129
  Serious: No
  Sender: FDA-Public Use
  Company Number: US-GLAXOSMITHKLINE-A0393194A

PATIENT
  Age: 53 Year
  Sex: Male

DRUGS (7)
  1. LAMICTAL [Suspect]
     Dosage: 25MG PER DAY
     Route: 048
     Dates: start: 20030109
  2. LITHOBID [Suspect]
     Route: 065
  3. KLONOPIN [Concomitant]
     Dosage: .5MG AT NIGHT
  4. MULTIVITAMIN [Concomitant]
  5. AMILORIDE [Concomitant]
  6. HYDROCHLOROTHIAZIDE [Concomitant]
  7. AUGMENTIN '125' [Concomitant]

REACTIONS (5)
  - DEPRESSED MOOD [None]
  - DEPRESSION [None]
  - FEELING ABNORMAL [None]
  - MOOD SWINGS [None]
  - TREMOR [None]
